FAERS Safety Report 24748609 (Version 1)
Quarter: 2024Q4

REPORT INFORMATION
  Report Type: Report from Study
  Country: FR (occurrence: FR)
  Receive Date: 20241218
  Receipt Date: 20241218
  Transmission Date: 20250114
  Serious: Yes (Other)
  Sender: VERTEX
  Company Number: FR-VERTEX PHARMACEUTICALS-2023-017383

PATIENT
  Age: 63 Year
  Sex: Female
  Weight: 56 kg

DRUGS (2)
  1. ELEXACAFTOR\IVACAFTOR\TEZACAFTOR [Suspect]
     Active Substance: ELEXACAFTOR\IVACAFTOR\TEZACAFTOR
     Indication: Cystic fibrosis
     Dosage: 2 TABS (75 MG IVA/ 50 MG TEZA/ 100 MG ELEXA) EVERYDAY
     Route: 048
     Dates: start: 20230901, end: 20231230
  2. KALYDECO [Suspect]
     Active Substance: IVACAFTOR
     Indication: Cystic fibrosis
     Dosage: 1 TAB, EVERYDAY
     Route: 048
     Dates: start: 20230901, end: 20231230

REACTIONS (4)
  - Drug-induced liver injury [Unknown]
  - Chest discomfort [Recovered/Resolved]
  - Cell death [Unknown]
  - Forced expiratory volume decreased [Unknown]

NARRATIVE: CASE EVENT DATE: 20230101
